FAERS Safety Report 4427755-4 (Version None)
Quarter: 2004Q3

REPORT INFORMATION
  Report Type: 
  Country: None (occurrence: None)
  Receive Date: 20040817
  Receipt Date: 20040805
  Transmission Date: 20050211
  Serious: Yes (Other)
  Sender: FDA-Public Use
  Company Number: DK-GLAXOSMITHKLINE-B0342156A

PATIENT
  Sex: Female

DRUGS (2)
  1. LAMICTAL [Suspect]
     Indication: EPILEPSY
     Dates: start: 20020101
  2. MAGNESIA [Concomitant]
     Indication: CONSTIPATION

REACTIONS (2)
  - CONVULSION [None]
  - DRUG INTERACTION [None]
